FAERS Safety Report 6597080-4 (Version None)
Quarter: 2010Q1

REPORT INFORMATION
  Report Type: 
  Country: None (occurrence: None)
  Receive Date: 20100223
  Receipt Date: 20100216
  Transmission Date: 20100710
  Serious: Yes (Other)
  Sender: FDA-Public Use
  Company Number: B0635489A

PATIENT
  Age: 38 Year
  Sex: Female
  Weight: 61 kg

DRUGS (1)
  1. WELLBUTRIN SR [Suspect]
     Indication: DEPRESSION
     Route: 048
     Dates: start: 20091112, end: 20091214

REACTIONS (2)
  - ABDOMINAL DISTENSION [None]
  - ABDOMINAL PAIN LOWER [None]
